FAERS Safety Report 4800222-1 (Version None)
Quarter: 2005Q4

REPORT INFORMATION
  Report Type: 
  Country: None (occurrence: None)
  Receive Date: 20051017
  Receipt Date: 20041029
  Transmission Date: 20060501
  Serious: No
  Sender: FDA-Public Use
  Company Number: US-GLAXOSMITHKLINE-A0531846A

PATIENT
  Age: 89 Year
  Sex: Female

DRUGS (1)
  1. CEFTIN [Suspect]
     Dosage: 500MG TWICE PER DAY
     Route: 048
     Dates: start: 20041028

REACTIONS (2)
  - CHROMATURIA [None]
  - DYSKINESIA [None]
